FAERS Safety Report 15147028 (Version 1)
Quarter: 2018Q3

REPORT INFORMATION
  Report Type: Report from Study
  Country: None (occurrence: US)
  Receive Date: 20180716
  Receipt Date: 20180716
  Transmission Date: 20181010
  Serious: Yes (Other)
  Sender: FDA-Public Use
  Company Number: US-ABBVIE-18K-163-2418411-00

PATIENT
  Age: 54 Year
  Sex: Female

DRUGS (1)
  1. HUMIRA [Suspect]
     Active Substance: ADALIMUMAB
     Indication: RHEUMATOID ARTHRITIS
     Route: 058

REACTIONS (7)
  - Ovarian neoplasm [Unknown]
  - Large intestinal obstruction [Unknown]
  - Knee arthroplasty [Unknown]
  - Pain [Unknown]
  - Swelling [Unknown]
  - Allergy to metals [Unknown]
  - Infection [Unknown]

NARRATIVE: CASE EVENT DATE: 2017
